FAERS Safety Report 8443902-1 (Version None)
Quarter: 2012Q2

REPORT INFORMATION
  Report Type: 
  Country: None (occurrence: None)
  Receive Date: 20120618
  Receipt Date: 20120605
  Transmission Date: 20120825
  Serious: Yes (Hospitalization)
  Sender: FDA-Public Use
  Company Number: US-BAYER-2012-055760

PATIENT
  Age: 24 Year
  Sex: Female
  Weight: 63.492 kg

DRUGS (4)
  1. YAZ [Suspect]
     Indication: CONTRACEPTION
     Dosage: UNK
     Dates: start: 20080819, end: 20110402
  2. SOLODYN [Concomitant]
     Dosage: 90 MG, UNK
     Route: 048
     Dates: start: 20100515
  3. PITUITARY HORMONE, ANTERIOR LOBE [Concomitant]
  4. ALDACTONE [Concomitant]
     Dosage: 100 MG, UNK
     Route: 048
     Dates: start: 20110303

REACTIONS (4)
  - INJURY [None]
  - DEEP VEIN THROMBOSIS [None]
  - PAIN [None]
  - PAIN IN EXTREMITY [None]
